FAERS Safety Report 6530060-3 (Version None)
Quarter: 2010Q1

REPORT INFORMATION
  Report Type: 
  Country: None (occurrence: None)
  Receive Date: 20100104
  Receipt Date: 20091216
  Transmission Date: 20100710
  Serious: Yes (Other)
  Sender: FDA-Public Use
  Company Number: PRA1-2009-00024

PATIENT
  Age: 14 Year
  Sex: Male
  Weight: 57.2 kg

DRUGS (3)
  1. 489 (LISDEXAMFETAMINE DIMESYLATE) (489 LISDEXAMFETAMINE DIMESYLATE) (L [Suspect]
     Indication: ATTENTION DEFICIT/HYPERACTIVITY DISORDER
     Dosage: 30 MG, 1X/DAY:QD, ORAL; 50 MG, 1X/DAY:QSD, ORAL; 30 MG, 1X/DAY;QD, ORAL
     Route: 048
     Dates: start: 20090402, end: 20090423
  2. 489 (LISDEXAMFETAMINE DIMESYLATE) (489 LISDEXAMFETAMINE DIMESYLATE) (L [Suspect]
     Indication: ATTENTION DEFICIT/HYPERACTIVITY DISORDER
     Dosage: 30 MG, 1X/DAY:QD, ORAL; 50 MG, 1X/DAY:QSD, ORAL; 30 MG, 1X/DAY;QD, ORAL
     Route: 048
     Dates: start: 20090424, end: 20091214
  3. 489 (LISDEXAMFETAMINE DIMESYLATE) (489 LISDEXAMFETAMINE DIMESYLATE) (L [Suspect]
     Indication: ATTENTION DEFICIT/HYPERACTIVITY DISORDER
     Dosage: 30 MG, 1X/DAY:QD, ORAL; 50 MG, 1X/DAY:QSD, ORAL; 30 MG, 1X/DAY;QD, ORAL
     Route: 048
     Dates: start: 20091215

REACTIONS (2)
  - BLOOD PRESSURE DIASTOLIC DECREASED [None]
  - SYNCOPE [None]
